FAERS Safety Report 6152314-5 (Version None)
Quarter: 2009Q2

REPORT INFORMATION
  Report Type: 
  Country: None (occurrence: None)
  Receive Date: 20090413
  Receipt Date: 20070406
  Transmission Date: 20091009
  Serious: Yes (Hospitalization, Disabling)
  Sender: FDA-Public Use
  Company Number: US-ASTRAZENECA-2006UW10158

PATIENT
  Age: 18600 Day
  Sex: Female
  Weight: 103 kg

DRUGS (8)
  1. SEROQUEL [Suspect]
     Dosage: 25 MG-100 MG
     Route: 048
     Dates: start: 20040409
  2. WELLBUTRIN [Concomitant]
  3. COLACE [Concomitant]
  4. ZOCOR [Concomitant]
  5. XANAX [Concomitant]
  6. TOPAMAX [Concomitant]
  7. AMBIEN [Concomitant]
  8. ZOLOFT [Concomitant]

REACTIONS (3)
  - CHEST PAIN [None]
  - HYPOGLYCAEMIA [None]
  - ILL-DEFINED DISORDER [None]
